FAERS Safety Report 10079116 (Version 1)
Quarter: 2014Q2

REPORT INFORMATION
  Report Type: Spontaneous
  Country: US (occurrence: None)
  Receive Date: 20140414
  Receipt Date: 20140414
  Transmission Date: 20141212
  Serious: Yes (Hospitalization)
  Sender: FDA-Public Use
  Company Number: None

PATIENT
  Age: 31 Year
  Sex: Female
  Weight: 54.43 kg

DRUGS (1)
  1. LIDOCAINE [Suspect]
     Indication: PRODUCT USED FOR UNKNOWN INDICATION
     Dates: start: 20110606, end: 20120830

REACTIONS (6)
  - Hypoaesthesia [None]
  - Penis disorder [None]
  - Menorrhagia [None]
  - Sexual dysfunction [None]
  - Libido increased [None]
  - Sensory loss [None]
